FAERS Safety Report 11661609 (Version 2)
Quarter: 2015Q4

REPORT INFORMATION
  Report Type: Spontaneous
  Country: JP (occurrence: JP)
  Receive Date: 20151026
  Receipt Date: 20151026
  Transmission Date: 20160304
  Serious: Yes (Hospitalization)
  Sender: FDA-Public Use
  Company Number: JP-BAYER-2015-444753

PATIENT
  Age: 75 Year
  Sex: Male

DRUGS (4)
  1. DABIGATRAN [Interacting]
     Active Substance: DABIGATRAN
     Route: 048
  2. RT-PA [Concomitant]
     Active Substance: ALTEPLASE
     Indication: CEREBRAL INFARCTION
     Route: 042
  3. ACETYLSALICYLIC ACID({=100 MG) [Suspect]
     Active Substance: ASPIRIN
     Route: 048
  4. RT-PA [Concomitant]
     Active Substance: ALTEPLASE
     Indication: BASILAR ARTERY OCCLUSION

REACTIONS (4)
  - Cerebral infarction [None]
  - Basilar artery occlusion [None]
  - Drug interaction [None]
  - Cerebral haemorrhage [None]
